FAERS Safety Report 5167580-2 (Version None)
Quarter: 2006Q4

REPORT INFORMATION
  Report Type: 
  Country: None (occurrence: None)
  Receive Date: 20060830
  Receipt Date: 20060511
  Transmission Date: 20070319
  Serious: No
  Sender: FDA-Public Use
  Company Number: 224991

PATIENT
  Age: 18 Year
  Sex: Female
  Weight: 66.2 kg

DRUGS (1)
  1. XOLAIR [Suspect]
     Indication: ASTHMA
     Dosage: 225 MG , Q2W, UNK
     Dates: start: 20060420

REACTIONS (2)
  - NAUSEA [None]
  - PYREXIA [None]
